FAERS Safety Report 5928832-9 (Version None)
Quarter: 2008Q4

REPORT INFORMATION
  Report Type: 
  Country: None (occurrence: None)
  Receive Date: 20081020
  Receipt Date: 20080909
  Transmission Date: 20090506
  Serious: Yes (Hospitalization)
  Sender: FDA-Public Use
  Company Number: 2008BM000181

PATIENT
  Age: 14 Year
  Sex: Female
  Weight: 19 kg

DRUGS (2)
  1. NAGLAZYME [Suspect]
     Indication: MUCOPOLYSACCHARIDOSIS VI
     Dosage: 20 MG; QW; IVDRP, ; QW; IVDRP
     Route: 041
     Dates: start: 20080515, end: 20080801
  2. NAGLAZYME [Suspect]
     Indication: MUCOPOLYSACCHARIDOSIS VI
     Dosage: 20 MG; QW; IVDRP, ; QW; IVDRP
     Route: 041
     Dates: start: 20080926

REACTIONS (4)
  - CATHETER PLACEMENT [None]
  - INGUINAL HERNIA REPAIR [None]
  - POOR VENOUS ACCESS [None]
  - UMBILICAL HERNIA REPAIR [None]
